FAERS Safety Report 11631126 (Version 1)
Quarter: 2015Q4

REPORT INFORMATION
  Report Type: Spontaneous
  Country: US (occurrence: US)
  Receive Date: 20151014
  Receipt Date: 20151014
  Transmission Date: 20160304
  Serious: No
  Sender: FDA-Public Use
  Company Number: US-CELGENEUS-USA-2015092611

PATIENT
  Age: 71 Year
  Sex: Female

DRUGS (1)
  1. POMALYST [Suspect]
     Active Substance: POMALIDOMIDE
     Indication: PLASMA CELL MYELOMA
     Dosage: 4 MILLIGRAM
     Route: 048
     Dates: start: 20150709

REACTIONS (4)
  - Arthralgia [Recovered/Resolved]
  - Tremor [Recovered/Resolved]
  - Malaise [Recovered/Resolved]
  - Skin discolouration [Recovered/Resolved]

NARRATIVE: CASE EVENT DATE: 20150906
